FAERS Safety Report 9455953 (Version 4)
Quarter: 2014Q4

REPORT INFORMATION
  Report Type: Spontaneous
  Country: US (occurrence: US)
  Receive Date: 20130813
  Receipt Date: 20141114
  Transmission Date: 20150529
  Serious: Yes (Hospitalization, Disabling, Other)
  Sender: FDA-Public Use
  Company Number: US-009507513-1308USA003781

PATIENT
  Sex: Female

DRUGS (5)
  1. ALENDRONATE SODIUM. [Suspect]
     Active Substance: ALENDRONATE SODIUM
     Indication: OSTEOPENIA
  2. FOSAMAX [Suspect]
     Active Substance: ALENDRONATE SODIUM
     Indication: OSTEOPOROSIS
     Dosage: 70 MG, UNK
     Route: 048
     Dates: start: 20030827, end: 20080808
  3. SINGULAIR [Concomitant]
     Active Substance: MONTELUKAST SODIUM
     Indication: ASTHMA
     Dosage: UNK
     Dates: start: 2000
  4. FOSAMAX [Suspect]
     Active Substance: ALENDRONATE SODIUM
     Indication: OSTEOPENIA
  5. ALENDRONATE SODIUM. [Suspect]
     Active Substance: ALENDRONATE SODIUM
     Indication: OSTEOPOROSIS
     Dosage: 70 MG, UNK
     Route: 048
     Dates: start: 20080708, end: 20110718

REACTIONS (39)
  - Urinary incontinence [Unknown]
  - Back pain [Unknown]
  - Joint effusion [Unknown]
  - Hypertonic bladder [Unknown]
  - Meniscus injury [Unknown]
  - Anxiety [Unknown]
  - Fear of falling [Unknown]
  - Cataract operation [Unknown]
  - Back pain [Unknown]
  - Gastrooesophageal reflux disease [Unknown]
  - Haemarthrosis [Unknown]
  - Tibia fracture [Unknown]
  - Low turnover osteopathy [Not Recovered/Not Resolved]
  - Femur fracture [Not Recovered/Not Resolved]
  - Pneumonia [Unknown]
  - Electrocardiogram ST segment abnormal [Unknown]
  - Drug hypersensitivity [Unknown]
  - Femur fracture [Not Recovered/Not Resolved]
  - Open reduction of fracture [Unknown]
  - Chest pain [Unknown]
  - Bursitis infective [Unknown]
  - Hypertension [Unknown]
  - Fear [Unknown]
  - Cough [Unknown]
  - Contusion [Unknown]
  - Osteoporosis [Not Recovered/Not Resolved]
  - Hyperlipidaemia [Unknown]
  - Urinary tract infection [Unknown]
  - Intervertebral disc degeneration [Unknown]
  - Nausea [Unknown]
  - Stress fracture [Not Recovered/Not Resolved]
  - Fall [Unknown]
  - Dyspepsia [Unknown]
  - Mobility decreased [Unknown]
  - Vomiting [Unknown]
  - Anaemia postoperative [Unknown]
  - Depression [Unknown]
  - Carpal tunnel syndrome [Unknown]
  - Avulsion fracture [Unknown]

NARRATIVE: CASE EVENT DATE: 2005
